FAERS Safety Report 10897685 (Version 1)
Quarter: 2015Q1

REPORT INFORMATION
  Report Type: Spontaneous
  Country: US (occurrence: None)
  Receive Date: 20150302
  Receipt Date: 20150302
  Transmission Date: 20150721
  Serious: Yes (Death)
  Sender: FDA-Public Use
  Company Number: None

PATIENT
  Age: 66 Year
  Sex: Female
  Weight: 97 kg

DRUGS (1)
  1. BEVACIZUMAB (RHUMAB VEGF) [Suspect]
     Active Substance: BEVACIZUMAB
     Dates: end: 20150220

REACTIONS (7)
  - Muscular weakness [None]
  - Urinary retention [None]
  - Chronic obstructive pulmonary disease [None]
  - Bronchial secretion retention [None]
  - Back pain [None]
  - Metastases to meninges [None]
  - General physical health deterioration [None]

NARRATIVE: CASE EVENT DATE: 20150216
